FAERS Safety Report 21404802 (Version 1)
Quarter: 2022Q3

REPORT INFORMATION
  Report Type: Spontaneous
  Country: US (occurrence: None)
  Receive Date: 20220930
  Receipt Date: 20220930
  Transmission Date: 20221027
  Serious: Yes (Hospitalization)
  Sender: FDA-Public Use
  Company Number: None

PATIENT
  Age: 63 Year
  Sex: Male
  Weight: 78 kg

DRUGS (2)
  1. CELECOXIB [Suspect]
     Active Substance: CELECOXIB
     Indication: Pain
     Dosage: FREQUENCY : TWICE A DAY;?
     Route: 048
     Dates: start: 20190528, end: 20220920
  2. ASPIRIN [Suspect]
     Active Substance: ASPIRIN
     Indication: Prophylaxis
     Dosage: FREQUENCY : DAILY;?
     Route: 048
     Dates: start: 20200701, end: 20220920

REACTIONS (1)
  - Anaemia [None]

NARRATIVE: CASE EVENT DATE: 20220920
